FAERS Safety Report 7617375-2 (Version None)
Quarter: 2011Q3

REPORT INFORMATION
  Report Type: 
  Country: None (occurrence: None)
  Receive Date: 20110718
  Receipt Date: 20110712
  Transmission Date: 20111222
  Serious: Yes (Other)
  Sender: FDA-Public Use
  Company Number: US-PFIZER INC-2011158561

PATIENT
  Sex: Female

DRUGS (4)
  1. CAFFEINE CITRATE [Suspect]
     Dosage: UNK
  2. CELEBREX [Suspect]
     Indication: PAIN
     Dosage: UNK
  3. TYLENOL-500 [Suspect]
     Dosage: UNK
  4. IBUPROFEN [Suspect]
     Dosage: UNK

REACTIONS (5)
  - MYALGIA [None]
  - DRUG INEFFECTIVE [None]
  - ULCER [None]
  - FIBROMYALGIA [None]
  - ARTHRALGIA [None]
